FAERS Safety Report 9001964 (Version 3)
Quarter: 2013Q1

REPORT INFORMATION
  Report Type: Spontaneous
  Country: US (occurrence: US)
  Receive Date: 20130108
  Receipt Date: 20130212
  Transmission Date: 20140127
  Serious: Yes (Hospitalization)
  Sender: FDA-Public Use
  Company Number: US-BIOGENIDEC-2013BI000150

PATIENT
  Sex: Female

DRUGS (1)
  1. TYSABRI [Suspect]
     Indication: MULTIPLE SCLEROSIS
     Route: 042
     Dates: start: 20120709

REACTIONS (6)
  - Ear infection [Unknown]
  - Urinary tract infection [Unknown]
  - Therapeutic response decreased [Unknown]
  - Drug specific antibody present [Unknown]
  - Upper respiratory tract infection [Recovered/Resolved]
  - Food poisoning [Recovered/Resolved]
